FAERS Safety Report 20143508 (Version 1)
Quarter: 2021Q4

REPORT INFORMATION
  Report Type: Spontaneous
  Country: CN (occurrence: None)
  Receive Date: 20211203
  Receipt Date: 20211203
  Transmission Date: 20220304
  Serious: Yes (Other)
  Sender: FDA-Public Use
  Company Number: CN-ROCHE-2964153

PATIENT
  Age: 48 Year
  Sex: Female

DRUGS (9)
  1. HERCEPTIN [Suspect]
     Active Substance: TRASTUZUMAB
     Indication: Breast cancer
     Dosage: HT: 26-JUL-2019, 19-AUG-2019
     Route: 041
  2. HERCEPTIN [Suspect]
     Active Substance: TRASTUZUMAB
     Dosage: THP:19-SEP-2019,29-DEC-2019,21-JAN-2020, 21-FEB-2020, 03-APR-2020,01-MAY-2020, 08-JUN-2020
     Route: 041
  3. HERCEPTIN [Suspect]
     Active Substance: TRASTUZUMAB
     Dosage: 17-OCT-2019, 21-NOV-2019
     Route: 041
  4. PERJETA [Suspect]
     Active Substance: PERTUZUMAB
     Indication: Breast cancer
     Route: 041
     Dates: start: 20190820
  5. PERJETA [Suspect]
     Active Substance: PERTUZUMAB
     Dosage: THP:19-SEP-2019,29-DEC-2019,21-JAN-2020, 21-FEB-2020, 03-APR-2020,01-MAY-2020, 08-JUN-2020
     Route: 041
  6. PERJETA [Suspect]
     Active Substance: PERTUZUMAB
     Dosage: 17-OCT-2019, 21-NOV-2019
     Route: 041
  7. DOCETAXEL [Concomitant]
     Active Substance: DOCETAXEL
     Indication: Breast cancer
     Dosage: HT: 26-JUL-2019, 19-AUG-2019
  8. PACLITAXEL [Concomitant]
     Active Substance: PACLITAXEL
     Indication: Breast cancer
     Dosage: THP:19-SEP-2019,29-DEC-2019,21-JAN-2020, 21-FEB-2020, 03-APR-2020,01-MAY-2020, 08-JUN-2020
     Route: 041
  9. PACLITAXEL [Concomitant]
     Active Substance: PACLITAXEL
     Indication: Breast cancer
     Dosage: 17-OCT-2019, 21-NOV-2019

REACTIONS (2)
  - Rash [Unknown]
  - Myelosuppression [Unknown]
